FAERS Safety Report 10653129 (Version 2)
Quarter: 2015Q1

REPORT INFORMATION
  Report Type: Spontaneous
  Country: JP (occurrence: JP)
  Receive Date: 20141215
  Receipt Date: 20150225
  Transmission Date: 20150720
  Serious: Yes (Other)
  Sender: FDA-Public Use
  Company Number: JP-PFIZER INC-2014338828

PATIENT

DRUGS (5)
  1. FUROSEMIDE. [Suspect]
     Active Substance: FUROSEMIDE
     Dosage: 6 MG, DAILY
  2. FUROSEMIDE. [Suspect]
     Active Substance: FUROSEMIDE
     Indication: VENTRICULAR SEPTAL DEFECT
     Dosage: 3 MG, DAILY
  3. ALDACTONE [Suspect]
     Active Substance: SPIRONOLACTONE
     Dosage: 6 MG, DAILY
     Route: 048
  4. ALDACTONE [Suspect]
     Active Substance: SPIRONOLACTONE
     Dosage: 3 MG, DAILY
     Route: 048
  5. FENOBARBITAL [Concomitant]
     Active Substance: PHENOBARBITAL
     Indication: SEIZURE

REACTIONS (3)
  - Hyponatraemia [Unknown]
  - Acute prerenal failure [Unknown]
  - Dehydration [Unknown]
